FAERS Safety Report 24200853 (Version 2)
Quarter: 2024Q3

REPORT INFORMATION
  Report Type: Report from Study
  Country: HU (occurrence: HU)
  Receive Date: 20240812
  Receipt Date: 20240911
  Transmission Date: 20241017
  Serious: Yes (Other)
  Sender: ROCHE
  Company Number: HU-ROCHE-10000048980

PATIENT

DRUGS (13)
  1. TOCILIZUMAB [Interacting]
     Active Substance: TOCILIZUMAB
     Indication: Product used for unknown indication
     Route: 065
  2. MABTHERA [Interacting]
     Active Substance: RITUXIMAB
     Indication: Product used for unknown indication
     Route: 065
  3. ADALIMUMAB [Interacting]
     Active Substance: ADALIMUMAB
     Indication: Product used for unknown indication
     Route: 065
  4. ETANERCEPT [Interacting]
     Active Substance: ETANERCEPT
     Indication: Product used for unknown indication
     Route: 065
  5. GOLIMUMAB [Interacting]
     Active Substance: GOLIMUMAB
     Indication: Product used for unknown indication
     Route: 065
  6. INFLIXIMAB [Interacting]
     Active Substance: INFLIXIMAB
     Indication: Product used for unknown indication
     Route: 065
  7. TOFACITINIB [Interacting]
     Active Substance: TOFACITINIB
     Indication: Product used for unknown indication
     Route: 065
  8. CERTOLIZUMAB PEGOL [Interacting]
     Active Substance: CERTOLIZUMAB PEGOL
     Indication: Product used for unknown indication
     Route: 065
  9. BARICITINIB [Interacting]
     Active Substance: BARICITINIB
     Indication: Product used for unknown indication
     Route: 065
  10. ABATACEPT [Interacting]
     Active Substance: ABATACEPT
     Indication: Product used for unknown indication
     Route: 065
  11. SECUKINUMAB [Interacting]
     Active Substance: SECUKINUMAB
     Indication: Product used for unknown indication
     Route: 065
  12. UPADACITINIB [Interacting]
     Active Substance: UPADACITINIB
     Indication: Product used for unknown indication
     Route: 065
  13. IXEKIZUMAB [Interacting]
     Active Substance: IXEKIZUMAB
     Indication: Product used for unknown indication
     Route: 065

REACTIONS (11)
  - Drug interaction [Unknown]
  - Nausea [Unknown]
  - Urinary tract infection [Unknown]
  - Hypertension [Unknown]
  - Fatigue [Unknown]
  - Alopecia [Unknown]
  - Skin disorder [Unknown]
  - Infection [Unknown]
  - Prostatic disorder [Unknown]
  - Diarrhoea [Unknown]
  - Upper respiratory tract infection [Unknown]
